FAERS Safety Report 18729754 (Version 1)
Quarter: 2021Q1

REPORT INFORMATION
  Report Type: Spontaneous
  Country: US (occurrence: US)
  Receive Date: 20210111
  Receipt Date: 20210111
  Transmission Date: 20210419
  Serious: Yes (Other)
  Sender: FDA-Public Use
  Company Number: None

PATIENT
  Age: 71 Year
  Sex: Male

DRUGS (2)
  1. CEFEPIME (CEFEPIME HCL 2GM/VIL INJ) [Suspect]
     Active Substance: CEFEPIME HYDROCHLORIDE
     Indication: ENDOCARDITIS
     Dosage: ?          OTHER STRENGTH: 2GM/VIL;?
     Route: 042
     Dates: start: 20201202, end: 20201202
  2. CEFEPIME (CEFEPIME HCL 2GM/VIL INJ) [Suspect]
     Active Substance: CEFEPIME HYDROCHLORIDE
     Indication: PNEUMONIA NECROTISING
     Dosage: ?          OTHER STRENGTH: 2GM/VIL;?
     Route: 042
     Dates: start: 20201202, end: 20201202

REACTIONS (1)
  - Myoclonus [None]

NARRATIVE: CASE EVENT DATE: 20201208
